FAERS Safety Report 11136232 (Version 1)
Quarter: 2015Q2

REPORT INFORMATION
  Report Type: Spontaneous
  Country: US (occurrence: US)
  Receive Date: 20150526
  Receipt Date: 20150526
  Transmission Date: 20150821
  Serious: No
  Sender: FDA-Public Use
  Company Number: US-PURDUE-USA-2015-0121895

PATIENT
  Age: 57 Year
  Sex: Female

DRUGS (1)
  1. HYSINGLA ER [Suspect]
     Active Substance: HYDROCODONE BITARTRATE
     Indication: PAIN
     Dosage: 30 MG, DAILY
     Route: 048
     Dates: start: 20150313, end: 20150314

REACTIONS (3)
  - Burning sensation [Recovered/Resolved]
  - Dizziness [Recovered/Resolved]
  - Migraine [Recovered/Resolved]

NARRATIVE: CASE EVENT DATE: 20150313
